FAERS Safety Report 10222699 (Version 1)
Quarter: 2014Q2

REPORT INFORMATION
  Report Type: Spontaneous
  Country: CA (occurrence: CA)
  Receive Date: 20140606
  Receipt Date: 20140606
  Transmission Date: 20141212
  Serious: Yes (Disabling, Other)
  Sender: FDA-Public Use
  Company Number: CA-CUBIST PHARMACEUTICAL, INC.-2014CBST000815

PATIENT
  Sex: 0

DRUGS (2)
  1. CUBICIN [Suspect]
     Indication: ENDOCARDITIS STAPHYLOCOCCAL
     Dosage: UNK UNK, UNK
     Route: 065
  2. SEPTRA [Concomitant]
     Indication: STAPHYLOCOCCAL BACTERAEMIA
     Dosage: UNK, UNK, UNK
     Route: 065

REACTIONS (4)
  - Endophthalmitis [Unknown]
  - Blindness [Unknown]
  - Bacteraemia [Unknown]
  - Antimicrobial susceptibility test resistant [Unknown]
